FAERS Safety Report 9364108 (Version 1)
Quarter: 2013Q2

REPORT INFORMATION
  Report Type: Spontaneous
  Country: CA (occurrence: None)
  Receive Date: 20130618
  Receipt Date: 20130618
  Transmission Date: 20140414
  Serious: Yes (Other)
  Sender: FDA-Public Use
  Company Number: 2013000129

PATIENT
  Age: 75 Year
  Sex: Female
  Weight: 77 kg

DRUGS (1)
  1. ACEON (PERINDOPRIL ERBUMINE) TABLET, 2MG [Suspect]
     Indication: HYPERTENSION
     Route: 048
     Dates: start: 20130507, end: 20130527

REACTIONS (1)
  - Hypertension [None]
